FAERS Safety Report 11235287 (Version 2)
Quarter: 2016Q1

REPORT INFORMATION
  Report Type: Other
  Country: AU (occurrence: AU)
  Receive Date: 20150630
  Receipt Date: 20160315
  Transmission Date: 20160525
  Serious: No
  Sender: FDA-Public Use
  Company Number: 2015AJA00018

PATIENT
  Age: 43 Year
  Sex: Female

DRUGS (5)
  1. BECLOMETHASONE [Concomitant]
     Active Substance: BECLOMETHASONE
  2. ACETAMINOPHEN AND CODEINE [Suspect]
     Active Substance: ACETAMINOPHEN\CODEINE PHOSPHATE
  3. LEVETIRACETAM. [Suspect]
     Active Substance: LEVETIRACETAM
     Indication: EPILEPSY
  4. ALCOHOL. [Suspect]
     Active Substance: ALCOHOL
  5. SALBUTAMOL [Concomitant]
     Active Substance: ALBUTEROL

REACTIONS (6)
  - Hypotension [None]
  - Bradycardia [None]
  - Overdose [None]
  - Urine output decreased [Recovered/Resolved]
  - Hypoglycaemia [None]
  - Toxicity to various agents [None]
